FAERS Safety Report 18529562 (Version 1)
Quarter: 2020Q4

REPORT INFORMATION
  Report Type: Spontaneous
  Country: US (occurrence: US)
  Receive Date: 20201121
  Receipt Date: 20201121
  Transmission Date: 20210114
  Serious: Yes (Other)
  Sender: FDA-Public Use
  Company Number: US-TARO-2020TAR01358

PATIENT

DRUGS (4)
  1. CARBAMAZEPINE TABLETS USP 200 MG [Suspect]
     Active Substance: CARBAMAZEPINE
     Indication: SEIZURE
     Dosage: 300 MILLIGRAM, BID, 1.5 TABLETS BY MOUTH TWICE PER DAY (300 MG EACH DOSE)
     Route: 065
  2. LATANOPROST. [Suspect]
     Active Substance: LATANOPROST
     Indication: GLAUCOMA
     Dosage: 1 DROP, 1 DROP IN EACH EYE BEFORE BED
     Route: 047
  3. TIMOLOL. [Concomitant]
     Active Substance: TIMOLOL
     Indication: GLAUCOMA
     Dosage: 1 DROP, QD, 1 DROP IN EACH EYE EVERY MORNING
     Route: 047
  4. LEVETIRACETAM. [Suspect]
     Active Substance: LEVETIRACETAM
     Indication: SEIZURE
     Dosage: 500 MILLIGRAM, BID, 2 TABLETS BY MOUTH TWICE PER DAY
     Route: 048
     Dates: start: 201902

REACTIONS (5)
  - Hallucination [Unknown]
  - Impaired work ability [Unknown]
  - Psychomotor hyperactivity [Unknown]
  - Anxiety [Recovering/Resolving]
  - Confusional state [Unknown]

NARRATIVE: CASE EVENT DATE: 201902
